FAERS Safety Report 12179722 (Version 4)
Quarter: 2016Q2

REPORT INFORMATION
  Report Type: Report from Study
  Country: AU (occurrence: AU)
  Receive Date: 20160314
  Receipt Date: 20160517
  Transmission Date: 20160815
  Serious: Yes (Hospitalization)
  Sender: FDA-Public Use
  Company Number: AU-ABBVIE-15P-008-1527130-00

PATIENT
  Age: 57 Year
  Sex: Male

DRUGS (5)
  1. TACROLIMUS. [Suspect]
     Active Substance: TACROLIMUS
     Indication: LIVER TRANSPLANT
     Route: 048
     Dates: start: 201308
  2. VIEKIRA PAK [Suspect]
     Active Substance: DASABUVIR\OMBITASVIR\PARITAPREVIR\RITONAVIR
     Indication: HEPATITIS C
     Dosage: 12.5/75/50MG 2 TABLETS IN THE AM: DASABUVIR 250MG 1 TABLE BID
     Route: 048
     Dates: start: 20151120
  3. RIBAVIRIN. [Suspect]
     Active Substance: RIBAVIRIN
     Dosage: ONCE IN THE MORNING
     Route: 048
     Dates: start: 201512
  4. RIBAVIRIN. [Suspect]
     Active Substance: RIBAVIRIN
     Indication: HEPATITIS C
     Route: 048
     Dates: start: 20151120
  5. RIBAVIRIN. [Suspect]
     Active Substance: RIBAVIRIN
     Dosage: RBV 200MGS MANE X 600MGS NOCTE
     Route: 048
     Dates: end: 201512

REACTIONS (13)
  - Diarrhoea [Recovering/Resolving]
  - Mouth ulceration [Unknown]
  - Malaise [Recovering/Resolving]
  - Headache [Not Recovered/Not Resolved]
  - Tongue ulceration [Unknown]
  - Feeling abnormal [Unknown]
  - Pallor [Not Recovered/Not Resolved]
  - Insomnia [Not Recovered/Not Resolved]
  - Gastroenteritis cryptosporidial [Recovering/Resolving]
  - Nausea [Recovering/Resolving]
  - Drug level increased [Unknown]
  - Decreased immune responsiveness [Unknown]
  - Fatigue [Not Recovered/Not Resolved]

NARRATIVE: CASE EVENT DATE: 20151128
